FAERS Safety Report 5630333-2 (Version None)
Quarter: 2008Q1

REPORT INFORMATION
  Report Type: 
  Country: None (occurrence: None)
  Receive Date: 20080219
  Receipt Date: 20080213
  Transmission Date: 20080703
  Serious: Yes (Hospitalization)
  Sender: FDA-Public Use
  Company Number: US-BRISTOL-MYERS SQUIBB COMPANY-14075790

PATIENT
  Age: 71 Year
  Sex: Male
  Weight: 103 kg

DRUGS (13)
  1. ABILIFY [Suspect]
     Indication: BIPOLAR DISORDER
     Route: 048
     Dates: start: 20061001
  2. ALLOPURINOL [Concomitant]
  3. DEPAKOTE [Concomitant]
  4. DIOVAN [Concomitant]
  5. LASIX [Concomitant]
     Route: 048
  6. PROCRIT [Concomitant]
     Dosage: 1 DOSAGE FORM: INJECTION 1  TO 2 TIMES PER MONTH
  7. LIPITOR [Concomitant]
  8. NORVASC [Concomitant]
  9. VOLTAREN [Concomitant]
  10. TRICOR [Concomitant]
  11. FLORINEF [Concomitant]
  12. NIACIN [Concomitant]
  13. FERROUS [Concomitant]

REACTIONS (2)
  - CELLULITIS [None]
  - OEDEMA PERIPHERAL [None]
